FAERS Safety Report 10566750 (Version 5)
Quarter: 2014Q4

REPORT INFORMATION
  Report Type: Spontaneous
  Country: BR (occurrence: BR)
  Receive Date: 20141105
  Receipt Date: 20141128
  Transmission Date: 20150529
  Serious: Yes (Disabling, Other)
  Sender: FDA-Public Use
  Company Number: PHHY2014BR142835

PATIENT
  Age: 70 Year
  Sex: Female

DRUGS (2)
  1. EXFORGE HCT [Suspect]
     Active Substance: AMLODIPINE BESYLATE\HYDROCHLOROTHIAZIDE\VALSARTAN
     Dosage: 0.5 DF, UNK
     Route: 065
  2. EXFORGE HCT [Suspect]
     Active Substance: AMLODIPINE BESYLATE\HYDROCHLOROTHIAZIDE\VALSARTAN
     Indication: HYPERTENSION
     Dosage: 1 DF, QD
     Route: 048

REACTIONS (16)
  - Blindness [Unknown]
  - Malaise [Unknown]
  - Wrong technique in drug usage process [Unknown]
  - Diabetes mellitus [Unknown]
  - Muscle spasms [Unknown]
  - Visual impairment [Unknown]
  - Glaucoma [Unknown]
  - Arthralgia [Recovered/Resolved]
  - Dry mouth [Recovered/Resolved]
  - Eye disorder [Unknown]
  - Oedema peripheral [Recovered/Resolved]
  - Eye pain [Unknown]
  - Apathy [Recovered/Resolved]
  - Blood cholesterol increased [Unknown]
  - Hypotension [Recovered/Resolved]
  - Hypertension [Unknown]

NARRATIVE: CASE EVENT DATE: 20141027
